FAERS Safety Report 4678224-8 (Version None)
Quarter: 2005Q2

REPORT INFORMATION
  Report Type: 
  Country: None (occurrence: None)
  Receive Date: 20050601
  Receipt Date: 20050523
  Transmission Date: 20051028
  Serious: Yes (Hospitalization, Disabling, Other)
  Sender: FDA-Public Use
  Company Number: DE-BRISTOL-MYERS SQUIBB COMPANY-12979399

PATIENT
  Age: 59 Year
  Sex: Male

DRUGS (7)
  1. CISPLATIN [Suspect]
     Indication: NON-SMALL CELL LUNG CANCER
     Dosage: DAY 1 + 8 1ST DOSE: 27APR05
     Route: 042
     Dates: start: 20050427, end: 20050427
  2. PACLITAXEL [Suspect]
     Indication: NON-SMALL CELL LUNG CANCER
     Dosage: DAY 1 + 8 1ST DOSE: 27APR05
     Route: 042
     Dates: start: 20050504, end: 20050504
  3. ACC [Concomitant]
     Dates: start: 20050401
  4. DECORTIN [Concomitant]
     Dates: start: 20050401
  5. PANTOPRAZOLE SODIUM [Concomitant]
     Dates: start: 20050401
  6. BERODUAL [Concomitant]
     Dates: start: 20050401
  7. THEOPHYLLINE [Concomitant]
     Dates: start: 20050401

REACTIONS (3)
  - LOBAR PNEUMONIA [None]
  - PLEURISY [None]
  - TACHYARRHYTHMIA [None]
